FAERS Safety Report 25054665 (Version 2)
Quarter: 2025Q1

REPORT INFORMATION
  Report Type: Report from Study
  Country: US (occurrence: US)
  Receive Date: 20250308
  Receipt Date: 20250320
  Transmission Date: 20250409
  Serious: Yes (Other)
  Sender: ABBVIE
  Company Number: US-ABBVIE-6165425

PATIENT
  Age: 62 Year
  Sex: Female

DRUGS (1)
  1. SKYRIZI [Suspect]
     Active Substance: RISANKIZUMAB-RZAA
     Indication: Product used for unknown indication
     Route: 058

REACTIONS (5)
  - Oral surgery [Unknown]
  - Procedural pain [Not Recovered/Not Resolved]
  - Post procedural complication [Unknown]
  - Dental bone graft [Unknown]
  - Speech disorder [Unknown]

NARRATIVE: CASE EVENT DATE: 20240101
